FAERS Safety Report 6146631-2 (Version None)
Quarter: 2009Q2

REPORT INFORMATION
  Report Type: 
  Country: None (occurrence: None)
  Receive Date: 20090403
  Receipt Date: 20090403
  Transmission Date: 20091009
  Serious: No
  Sender: FDA-Public Use
  Company Number: None

PATIENT
  Age: 83 Year
  Sex: Male

DRUGS (6)
  1. LEVAQUIN [Suspect]
     Indication: PNEUMONIA
     Dosage: 500MG QDAY IV
     Route: 042
     Dates: start: 20090329, end: 20090330
  2. CEFOTAN [Concomitant]
  3. TPN [Concomitant]
  4. HEPARIN [Concomitant]
  5. NEXIUM [Concomitant]
  6. TENORMIN [Concomitant]

REACTIONS (2)
  - ERYTHEMA [None]
  - RASH [None]
